FAERS Safety Report 17250793 (Version 1)
Quarter: 2020Q1

REPORT INFORMATION
  Report Type: Spontaneous
  Country: CA (occurrence: CA)
  Receive Date: 20200109
  Receipt Date: 20200109
  Transmission Date: 20200409
  Serious: Yes (Other)
  Sender: FDA-Public Use
  Company Number: CA-TEVA-2020-CA-1165635

PATIENT
  Age: 38 Year
  Sex: Male
  Weight: 90 kg

DRUGS (2)
  1. QUETIAPINE FUMARATE. [Suspect]
     Active Substance: QUETIAPINE FUMARATE
     Indication: PRODUCT USED FOR UNKNOWN INDICATION
     Dosage: 25 MILLIGRAM DAILY;
     Route: 065
  2. COMBANTRIN TAB 125MG [Interacting]
     Active Substance: PYRANTEL PAMOATE
     Indication: ENTEROBIASIS
     Route: 048

REACTIONS (7)
  - Drug interaction [Recovered/Resolved]
  - Bowel movement irregularity [Recovered/Resolved]
  - Decreased appetite [Recovered/Resolved]
  - Depression [Recovered/Resolved]
  - Mucous stools [Recovered/Resolved]
  - Overdose [Recovered/Resolved]
  - Haematochezia [Recovered/Resolved]
